FAERS Safety Report 5551724-4 (Version None)
Quarter: 2007Q4

REPORT INFORMATION
  Report Type: 
  Country: None (occurrence: None)
  Receive Date: 20071129
  Receipt Date: 20070501
  Transmission Date: 20080405
  Serious: Yes (Hospitalization)
  Sender: FDA-Public Use
  Company Number: US200609007366

PATIENT
  Age: 59 Year
  Sex: Female
  Weight: 71.7 kg

DRUGS (1)
  1. ZYPREXA [Suspect]
     Indication: DEPRESSION
     Dosage: 2.5 MG
     Dates: start: 19990101, end: 20030101

REACTIONS (3)
  - CONVULSION [None]
  - DIABETES MELLITUS [None]
  - METABOLIC DISORDER [None]
